FAERS Safety Report 26191087 (Version 1)
Quarter: 2025Q4

REPORT INFORMATION
  Report Type: Spontaneous
  Country: US (occurrence: US)
  Receive Date: 20251223
  Receipt Date: 20251223
  Transmission Date: 20260118
  Serious: No
  Sender: BAXTER
  Company Number: US-BAXTER-2025BAX023335

PATIENT
  Age: 90 Year
  Sex: Male
  Weight: 60.8 kg

DRUGS (3)
  1. POTASSIUM CHLORIDE [Suspect]
     Active Substance: POTASSIUM CHLORIDE
     Dosage: INFUSION COMPLETED IN 28 MINUTES
     Route: 042
  2. POTASSIUM CHLORIDE [Suspect]
     Active Substance: POTASSIUM CHLORIDE
     Dosage: INFUSION COMPLETED IN 16 MINUTES(ALREADY PRIMED, NO PRIMING VOLUME LOSS)
     Route: 042
     Dates: start: 20250427
  3. POTASSIUM CHLORIDE [Suspect]
     Active Substance: POTASSIUM CHLORIDE
     Dosage: 20 MEQ/50 ML
     Route: 065
     Dates: start: 20250427, end: 20250427

REACTIONS (3)
  - Infusion site pain [Unknown]
  - Device infusion issue [Unknown]
  - Device delivery system issue [Unknown]

NARRATIVE: CASE EVENT DATE: 20250427
